FAERS Safety Report 6582002-2 (Version None)
Quarter: 2010Q1

REPORT INFORMATION
  Report Type: 
  Country: None (occurrence: None)
  Receive Date: 20100215
  Receipt Date: 20100211
  Transmission Date: 20100710
  Serious: Yes (Other)
  Sender: FDA-Public Use
  Company Number: US-MERCK-0907USA05806

PATIENT
  Age: 55 Year
  Sex: Female

DRUGS (8)
  1. FOSAMAX [Suspect]
     Indication: SPINAL DISORDER
     Route: 048
     Dates: start: 20030101, end: 20070101
  2. FOSAMAX [Suspect]
     Route: 048
     Dates: start: 20030701, end: 20080101
  3. FOSAMAX [Suspect]
     Route: 048
     Dates: start: 20020301
  4. FOSAMAX [Suspect]
     Route: 048
     Dates: start: 20040401
  5. FOSAMAX [Suspect]
     Indication: OSTEOPOROSIS
     Route: 048
     Dates: start: 20030101, end: 20070101
  6. FOSAMAX [Suspect]
     Route: 048
     Dates: start: 20030701, end: 20080101
  7. FOSAMAX [Suspect]
     Route: 048
     Dates: start: 20020301
  8. FOSAMAX [Suspect]
     Route: 048
     Dates: start: 20040401

REACTIONS (19)
  - ARTHRALGIA [None]
  - BALANCE DISORDER [None]
  - CEREBROVASCULAR DISORDER [None]
  - DEAFNESS [None]
  - DIZZINESS [None]
  - EYE PAIN [None]
  - GINGIVAL BLEEDING [None]
  - GINGIVAL DISORDER [None]
  - GINGIVAL PAIN [None]
  - GINGIVITIS [None]
  - IMPAIRED HEALING [None]
  - INTERVERTEBRAL DISC DISORDER [None]
  - OSTEOARTHRITIS [None]
  - OSTEONECROSIS [None]
  - PAIN IN EXTREMITY [None]
  - RHINITIS SEASONAL [None]
  - TINNITUS [None]
  - TOOTH DISORDER [None]
  - WRONG TECHNIQUE IN DRUG USAGE PROCESS [None]
